FAERS Safety Report 23262594 (Version 1)
Quarter: 2023Q4

REPORT INFORMATION
  Report Type: Spontaneous
  Country: LT (occurrence: LT)
  Receive Date: 20231205
  Receipt Date: 20231205
  Transmission Date: 20240110
  Serious: Yes (Hospitalization)
  Sender: FDA-Public Use
  Company Number: None

PATIENT
  Age: 80 Year
  Sex: Male
  Weight: 85 kg

DRUGS (12)
  1. ELIQUIS [Suspect]
     Active Substance: APIXABAN
     Indication: Atrial fibrillation
     Route: 048
     Dates: start: 20231010, end: 20231124
  2. SPIRONOLACTONE [Concomitant]
     Active Substance: SPIRONOLACTONE
     Indication: Product used for unknown indication
     Dosage: FREQUENCY TIME: 1 DAY
     Route: 048
     Dates: start: 20231010
  3. TORSEMIDE [Concomitant]
     Active Substance: TORSEMIDE
     Indication: Product used for unknown indication
     Dosage: FREQUENCY TIME: 1 DAY
     Route: 048
     Dates: start: 20231010
  4. QUETIAPINE [Concomitant]
     Active Substance: QUETIAPINE
     Indication: Sleep disorder
     Dosage: FREQUENCY TIME: 1 DAY
     Route: 048
     Dates: start: 20231010
  5. DOXAZOSIN [Concomitant]
     Active Substance: DOXAZOSIN MESYLATE
     Indication: Benign prostatic hyperplasia
     Dosage: FREQUENCY TIME: 1 DAY
     Route: 048
     Dates: start: 20231010
  6. PANTOPRAZOLE [Concomitant]
     Active Substance: PANTOPRAZOLE
     Indication: Prophylaxis
     Dosage: FREQUENCY TIME: 1 DAY
     Route: 048
     Dates: start: 20231010
  7. PANTOPRAZOLE [Concomitant]
     Active Substance: PANTOPRAZOLE
     Indication: Peptic ulcer
  8. PANTOPRAZOLE [Concomitant]
     Active Substance: PANTOPRAZOLE
     Indication: Gastritis erosive
  9. ROSUVASTATIN [Concomitant]
     Active Substance: ROSUVASTATIN
     Indication: Product used for unknown indication
     Dosage: FREQUENCY TIME: 1 DAY
     Route: 048
     Dates: start: 20231010
  10. PERINDOPRIL/AMLODIPIN KRKA [Concomitant]
     Indication: Hypertension
     Dosage: FREQUENCY TIME: 1 DAY
     Route: 048
     Dates: start: 20231010
  11. ALLOPURINOL [Concomitant]
     Active Substance: ALLOPURINOL
     Indication: Gout
     Dosage: FREQUENCY TIME: 1 DAY
     Route: 048
     Dates: start: 20231010
  12. CLOPIDOGREL [Concomitant]
     Active Substance: CLOPIDOGREL BISULFATE
     Indication: Coronary arterial stent insertion
     Dosage: FREQUENCY TIME: 1 DAY
     Route: 048
     Dates: start: 20231010, end: 20231125

REACTIONS (3)
  - Anaemia [Recovering/Resolving]
  - Epistaxis [Recovering/Resolving]
  - Anticoagulation drug level abnormal [Recovering/Resolving]

NARRATIVE: CASE EVENT DATE: 20231124
